FAERS Safety Report 24855026 (Version 1)
Quarter: 2025Q1

REPORT INFORMATION
  Report Type: Spontaneous
  Country: FR (occurrence: FR)
  Receive Date: 20250117
  Receipt Date: 20250117
  Transmission Date: 20250409
  Serious: Yes (Hospitalization, Other)
  Sender: HIKMA
  Company Number: None

PATIENT

DRUGS (11)
  1. CARBOPLATIN [Suspect]
     Active Substance: CARBOPLATIN
     Indication: Lung neoplasm malignant
     Route: 042
     Dates: start: 20241204, end: 20241204
  2. PEMETREXED [Suspect]
     Active Substance: PEMETREXED
     Indication: Lung neoplasm malignant
     Route: 042
     Dates: start: 20241204, end: 20241204
  3. AMIVANTAMAB [Suspect]
     Active Substance: AMIVANTAMAB
     Route: 042
     Dates: start: 20241205, end: 20241205
  4. AMIVANTAMAB [Suspect]
     Active Substance: AMIVANTAMAB
     Indication: Lung neoplasm malignant
     Route: 042
     Dates: start: 20241204, end: 20241204
  5. AKYNZEO (NETUPITANT\PALONOSETRON HYDROCHLORIDE) [Concomitant]
     Active Substance: NETUPITANT\PALONOSETRON HYDROCHLORIDE
     Indication: Product used for unknown indication
     Route: 048
     Dates: start: 20241204, end: 20241204
  6. ACETAMINOPHEN [Concomitant]
     Active Substance: ACETAMINOPHEN
     Indication: Product used for unknown indication
     Route: 048
     Dates: start: 20241204, end: 20241205
  7. POLARAMINE [Concomitant]
     Active Substance: DEXCHLORPHENIRAMINE MALEATE
     Indication: Product used for unknown indication
     Dosage: 1 DOSAGE FORM, QD
     Route: 048
     Dates: start: 20241204, end: 20241205
  8. PREDNISOLONE [Concomitant]
     Active Substance: PREDNISOLONE
     Indication: Product used for unknown indication
     Route: 048
     Dates: start: 20241203, end: 20241203
  9. SOLU-MEDROL [Concomitant]
     Active Substance: METHYLPREDNISOLONE SODIUM SUCCINATE
     Indication: Product used for unknown indication
     Route: 042
     Dates: start: 20241204, end: 20241205
  10. FOLIC ACID [Concomitant]
     Active Substance: FOLIC ACID
     Indication: Product used for unknown indication
     Dosage: 1 DOSAGE FORM, QD
     Route: 048
     Dates: start: 202411, end: 20241205
  11. VITAMIN B12 [Concomitant]
     Active Substance: CYANOCOBALAMIN
     Indication: Product used for unknown indication
     Route: 030
     Dates: start: 202411

REACTIONS (1)
  - Meningitis noninfective [Recovered/Resolved]

NARRATIVE: CASE EVENT DATE: 20241205
